FAERS Safety Report 23280689 (Version 2)
Quarter: 2023Q4

REPORT INFORMATION
  Report Type: Spontaneous
  Country: BR (occurrence: BR)
  Receive Date: 20231211
  Receipt Date: 20231219
  Transmission Date: 20240109
  Serious: No
  Sender: FDA-Public Use
  Company Number: BR-VALIDUS PHARMACEUTICALS LLC-BR-VDP-2023-019045

PATIENT

DRUGS (5)
  1. LASIX [Suspect]
     Active Substance: FUROSEMIDE
     Indication: Diuretic therapy
     Dosage: TAKING 2 DOSES A DAY
     Route: 048
  2. LASIX [Suspect]
     Active Substance: FUROSEMIDE
     Dosage: 1 DF, QD (1 TIME ON AN  EMPTY STOMACH IN THE MORNING)
     Route: 048
     Dates: start: 20230926
  3. AZITHROMYCIN [Concomitant]
     Active Substance: AZITHROMYCIN
     Indication: Lung disorder
     Dosage: UNK
     Route: 065
  4. DIOVAN [Concomitant]
     Active Substance: VALSARTAN
     Indication: Blood pressure abnormal
     Dosage: UNK
     Route: 065
  5. SYNTHROID [Concomitant]
     Active Substance: LEVOTHYROXINE SODIUM
     Indication: Thyroid disorder
     Dosage: UNK
     Route: 065

REACTIONS (8)
  - Mouth swelling [Recovered/Resolved]
  - Dry mouth [Recovered/Resolved]
  - Chapped lips [Recovered/Resolved]
  - Oral pain [Recovered/Resolved]
  - Oral mucosal erythema [Recovered/Resolved]
  - Ageusia [Recovering/Resolving]
  - Decreased appetite [Recovering/Resolving]
  - Extra dose administered [Recovered/Resolved]

NARRATIVE: CASE EVENT DATE: 20230929
